APPROVED DRUG PRODUCT: FLUOCINOLONE ACETONIDE
Active Ingredient: FLUOCINOLONE ACETONIDE
Strength: 0.025%
Dosage Form/Route: CREAM;TOPICAL
Application: A210747 | Product #001 | TE Code: AT
Applicant: COSETTE PHARMACEUTICALS INC
Approved: Nov 5, 2018 | RLD: No | RS: No | Type: RX